FAERS Safety Report 8062217-7 (Version None)
Quarter: 2012Q1

REPORT INFORMATION
  Report Type: 
  Country: None (occurrence: None)
  Receive Date: 20120120
  Receipt Date: 20120120
  Transmission Date: 20120608
  Serious: No
  Sender: FDA-Public Use
  Company Number: None

PATIENT
  Weight: 67.1324 kg

DRUGS (1)
  1. PROLIA [Suspect]
     Indication: OSTEOPOROSIS PROPHYLAXIS
     Dosage: 60 MG EVERY 6 MONTHS
     Dates: start: 20111110

REACTIONS (5)
  - BACK PAIN [None]
  - VOMITING [None]
  - NAUSEA [None]
  - SURGERY [None]
  - PARAESTHESIA [None]
